FAERS Safety Report 5737300-9 (Version None)
Quarter: 2008Q2

REPORT INFORMATION
  Report Type: 
  Country: None (occurrence: None)
  Receive Date: 20080512
  Receipt Date: 20080512
  Transmission Date: 20081010
  Serious: Yes (Hospitalization)
  Sender: FDA-Public Use
  Company Number: None

PATIENT
  Age: 86 Year
  Sex: Female
  Weight: 63.5036 kg

DRUGS (1)
  1. DIGITEK 2.8 LEVEL [Suspect]
     Indication: CARDIAC DISORDER
     Dosage: 1 TAB -?- -MAY BE 2 TABS DAILY PO/MAYBE A COUPLE OF YEARS__??
     Route: 048

REACTIONS (4)
  - CEREBROVASCULAR ACCIDENT [None]
  - DRUG LEVEL ABOVE THERAPEUTIC [None]
  - FALL [None]
  - LOSS OF CONSCIOUSNESS [None]
